FAERS Safety Report 9622467 (Version 1)
Quarter: 2013Q4

REPORT INFORMATION
  Report Type: Spontaneous
  Country: US (occurrence: None)
  Receive Date: 20131010
  Receipt Date: 20131010
  Transmission Date: 20140711
  Serious: Yes (Hospitalization, Other)
  Sender: FDA-Public Use
  Company Number: 001603842A

PATIENT
  Age: 60 Year
  Sex: Female

DRUGS (3)
  1. MEANINGFUL BEAUTY ANITOXIDANT DAY CREME WITH SPF 20 [Suspect]
     Dosage: TWICE DAILY DERMAL
     Dates: start: 20130510, end: 20130908
  2. SKIN BRIGHTENING DECOLLETE AND NECK TREATMENT SPF 15 [Suspect]
     Dosage: TWICE DAILY DERMAL
     Dates: start: 20130510, end: 20130908
  3. VITAMINS [Concomitant]

REACTIONS (4)
  - Hypersensitivity [None]
  - Paraesthesia [None]
  - Hypoaesthesia oral [None]
  - Hypoaesthesia [None]
